FAERS Safety Report 5429905-X (Version None)
Quarter: 2007Q3

REPORT INFORMATION
  Report Type: 
  Country: None (occurrence: None)
  Receive Date: 20070827
  Receipt Date: 20070809
  Transmission Date: 20080115
  Serious: Yes (Hospitalization)
  Sender: FDA-Public Use
  Company Number: DSA_30408_2007

PATIENT
  Sex: Female

DRUGS (2)
  1. LORAZEPAM [Suspect]
     Dosage: (2.5 MG QD ORAL)
     Route: 048
     Dates: start: 20070801
  2. FLUNITRAZEPAM (FLUNITRAZEPAM) [Suspect]
     Dosage: (1 DF 1X ORAL)
     Route: 048
     Dates: start: 20070801, end: 20070801

REACTIONS (2)
  - HAEMOGLOBIN DECREASED [None]
  - INTENTIONAL SELF-INJURY [None]
